FAERS Safety Report 5579877-2 (Version None)
Quarter: 2008Q1

REPORT INFORMATION
  Report Type: 
  Country: None (occurrence: None)
  Receive Date: 20080102
  Receipt Date: 20071221
  Transmission Date: 20080703
  Serious: Yes (Hospitalization)
  Sender: FDA-Public Use
  Company Number: DE-MERCK-0712DEU00072

PATIENT
  Age: 68 Year
  Sex: Female

DRUGS (9)
  1. FOSAMAX [Suspect]
     Route: 048
  2. RAMIPRIL [Concomitant]
     Route: 065
  3. HYDROCHLOROTHIAZIDE [Concomitant]
     Route: 065
  4. PANTOPRAZOLE [Concomitant]
     Route: 065
  5. LEVOTHYROXINE SODIUM [Concomitant]
     Route: 065
  6. POTASSIUM IODIDE [Concomitant]
     Route: 065
  7. CALCIUM GLUCONATE [Concomitant]
     Route: 065
  8. CALCIUM LACTOBIONATE [Concomitant]
     Route: 065
  9. DULOXETINE HYDROCHLORIDE [Concomitant]
     Route: 065

REACTIONS (6)
  - ATELECTASIS [None]
  - BRONCHIAL INJURY [None]
  - DYSPHAGIA [None]
  - FOREIGN BODY ASPIRATION [None]
  - LARYNGEAL INJURY [None]
  - TRACHEAL INJURY [None]
